FAERS Safety Report 4368361-X (Version None)
Quarter: 2004Q2

REPORT INFORMATION
  Report Type: 
  Country: None (occurrence: None)
  Receive Date: 20040525
  Receipt Date: 20040510
  Transmission Date: 20050107
  Serious: Yes (Other)
  Sender: FDA-Public Use
  Company Number: S04-IRL-02153-01

PATIENT
  Age: 44 Year
  Sex: Female

DRUGS (3)
  1. ESCITALOPRAM [Suspect]
     Indication: ANXIETY
     Dosage: 10 MG QD PO
     Route: 048
     Dates: start: 20040420
  2. XANAX [Concomitant]
  3. MEFAC(MEFENAMIC ACID) [Concomitant]

REACTIONS (3)
  - AGITATION [None]
  - CONVULSION [None]
  - SYNCOPE [None]
